FAERS Safety Report 7428935-6 (Version None)
Quarter: 2011Q2

REPORT INFORMATION
  Report Type: 
  Country: None (occurrence: None)
  Receive Date: 20110421
  Receipt Date: 20110411
  Transmission Date: 20111010
  Serious: Yes (Hospitalization)
  Sender: FDA-Public Use
  Company Number: FR-JNJFOC-20110408333

PATIENT
  Age: 79 Year
  Sex: Female

DRUGS (16)
  1. SEROPLEX [Concomitant]
  2. CARDENSIEL [Concomitant]
  3. OXYNORM [Interacting]
     Indication: PAIN
     Route: 048
  4. METFORMIN [Concomitant]
     Route: 065
  5. PARACETAMOL [Concomitant]
  6. DEPAMIDE [Concomitant]
  7. LASIX [Concomitant]
  8. DIGOXIN [Concomitant]
  9. SKENAN [Suspect]
     Indication: NEURALGIA
     Route: 048
  10. FLUINDIONE [Concomitant]
  11. TOPALGIC [Suspect]
     Indication: NEURALGIA
     Route: 048
  12. ALDACTONE [Concomitant]
  13. CRESTOR [Concomitant]
  14. SIFROL [Concomitant]
  15. NEURONTIN [Concomitant]
  16. RAMIPRIL [Concomitant]

REACTIONS (6)
  - RESPIRATORY DISORDER [None]
  - SOMNOLENCE [None]
  - HYPOTENSION [None]
  - DRUG INTERACTION [None]
  - TACHYCARDIA [None]
  - DISTURBANCE IN ATTENTION [None]
